FAERS Safety Report 8509477-3 (Version None)
Quarter: 2012Q3

REPORT INFORMATION
  Report Type: 
  Country: None (occurrence: None)
  Receive Date: 20120713
  Receipt Date: 20120703
  Transmission Date: 20120928
  Serious: Yes (Hospitalization)
  Sender: FDA-Public Use
  Company Number: FR-009507513-1206FRA00166

PATIENT

DRUGS (6)
  1. METFORMIN HCL [Suspect]
     Indication: DYSLIPIDAEMIA
     Dosage: 1000 MG-50
     Route: 048
  2. TENORMIN [Suspect]
     Indication: MYOCARDIAL ISCHAEMIA
     Dosage: 200 MG, QD
     Route: 048
  3. PLAVIX [Suspect]
     Indication: MYOCARDIAL ISCHAEMIA
     Dosage: 75 MG, QD
     Route: 048
  4. FENOFIBRATE [Suspect]
     Indication: DYSLIPIDAEMIA
     Dosage: 67 MG, QD
     Route: 048
  5. AMARYL [Suspect]
     Indication: DIABETES MELLITUS
     Dosage: 8 MG, QD
     Route: 048
  6. VALSARTAN  AND HYDROCHLOROTHIAZIDE [Suspect]
     Indication: HYPERTENSION
     Route: 048

REACTIONS (1)
  - COLITIS ULCERATIVE [None]
